FAERS Safety Report 10073463 (Version 1)
Quarter: 2014Q2

REPORT INFORMATION
  Report Type: Spontaneous
  Country: FR (occurrence: FR)
  Receive Date: 20140411
  Receipt Date: 20140411
  Transmission Date: 20141212
  Serious: Yes (Other)
  Sender: FDA-Public Use
  Company Number: FR-ACTAVIS-2014-06782

PATIENT
  Age: 16 Year
  Sex: Male

DRUGS (15)
  1. RISPERIDONE (UNKNOWN) [Suspect]
     Indication: SCHIZOPHRENIA, CATATONIC TYPE
     Dosage: 1 MG, UNKNOWN
     Route: 048
  2. CLONAZEPAM (UNKNOWN) [Suspect]
     Indication: SCHIZOPHRENIA, CATATONIC TYPE
     Dosage: 0.05 MG/KG, DAILY
     Route: 048
     Dates: start: 200908
  3. CLONAZEPAM (UNKNOWN) [Suspect]
     Dosage: 0.05 MG/KG, DAILY
     Route: 042
  4. CLONAZEPAM (UNKNOWN) [Suspect]
     Dosage: 10 DROPS, TID
     Route: 048
  5. CLONAZEPAM (UNKNOWN) [Suspect]
     Dosage: 0.1 UNK, UNK
  6. LORAZEPAM (UNKNOWN) [Suspect]
     Indication: SCHIZOPHRENIA, CATATONIC TYPE
     Dosage: 5 MG, DAILY
     Route: 042
  7. CARBAMAZEPINE (UNKNOWN) [Suspect]
     Indication: SCHIZOPHRENIA, CATATONIC TYPE
     Dosage: 10 MG/KG, DAILY
     Route: 048
  8. OLANZAPINE (UNKNOWN) [Suspect]
     Indication: SCHIZOPHRENIA, CATATONIC TYPE
     Dosage: 5 MG, DAILY
     Route: 065
  9. OLANZAPINE (UNKNOWN) [Suspect]
     Dosage: 10 MG, DAILY
     Route: 065
  10. OLANZAPINE (UNKNOWN) [Suspect]
     Dosage: 15 MG, DAILY
     Route: 065
  11. OLANZAPINE (UNKNOWN) [Suspect]
     Dosage: 20 MG, DAILY
     Route: 065
  12. OLANZAPINE (UNKNOWN) [Suspect]
     Dosage: 15 UNK, UNK
     Route: 065
  13. LITHIUM CARBONATE (UNKNOWN) [Suspect]
     Indication: SCHIZOPHRENIA, CATATONIC TYPE
     Dosage: 250 MG, DAILY
     Route: 048
  14. CLOZAPINE (UNKNOWN) [Suspect]
     Indication: SCHIZOPHRENIA, CATATONIC TYPE
     Dosage: 25 MG, DAILY
     Route: 065
  15. CLOZAPINE (UNKNOWN) [Suspect]
     Dosage: 250 MG, INCREASED FROM 25 MG BY 25 MG WEEKLY, DAILY
     Route: 065

REACTIONS (4)
  - Parkinsonism [Unknown]
  - Sedation [Unknown]
  - Weight increased [Unknown]
  - Fatigue [Unknown]
